FAERS Safety Report 9310307 (Version 1)
Quarter: 2013Q2

REPORT INFORMATION
  Report Type: Spontaneous
  Country: BR (occurrence: BR)
  Receive Date: 20130527
  Receipt Date: 20130527
  Transmission Date: 20140414
  Serious: Yes (Other)
  Sender: FDA-Public Use
  Company Number: BR-PFIZER INC-2013160453

PATIENT
  Age: 59 Year
  Sex: Male
  Weight: 66.4 kg

DRUGS (26)
  1. VANCOMYCIN HCL [Suspect]
     Indication: KLEBSIELLA INFECTION
     Dosage: 1 G, 2X/DAY (EVERY 12 HOURS)
     Route: 042
     Dates: start: 20130215, end: 20130315
  2. VANCOMYCIN HCL [Suspect]
     Indication: HERPES SIMPLEX
  3. MEROPENEM [Concomitant]
     Indication: KLEBSIELLA INFECTION
     Dosage: 1000 MG, 3X/DAY (EVERY 8 HOURS)
     Route: 042
     Dates: start: 20130217, end: 20130325
  4. MEROPENEM [Concomitant]
     Indication: HERPES SIMPLEX
  5. PHENYTOIN [Concomitant]
     Dosage: 100 MG, 3X/DAY (EVERY 8 HOURS)
     Route: 048
     Dates: start: 20130205, end: 20130327
  6. DIPYRONE [Concomitant]
     Dosage: 1 G, AS NEEDED
     Route: 042
     Dates: start: 20130217, end: 20130327
  7. OMEPRAZOLE [Concomitant]
     Dosage: 80 MG, 2X/DAY (EVERY 12 HOURS)
     Route: 042
     Dates: start: 20130205, end: 20130327
  8. SERTRALINE [Concomitant]
     Dosage: 50 MG, 1X/DAY (MORNING)
     Route: 048
     Dates: start: 20130206, end: 20130327
  9. HYDROCORTISONE [Concomitant]
     Dosage: 100 MG/DAY
     Route: 042
     Dates: start: 20130217, end: 20130326
  10. DIPHENHYDRAMINE [Concomitant]
     Dosage: 50 MG ^ACM^
     Route: 042
     Dates: start: 20130217, end: 20130327
  11. FILGRASTIM [Concomitant]
     Dosage: 300 UG/DAY
     Route: 058
     Dates: start: 20130222, end: 20130325
  12. ACYCLOVIR [Concomitant]
     Dosage: 350 MG, 3X/DAY (EVERY 8 HOURS)
     Route: 042
     Dates: start: 20130222, end: 20130327
  13. POLYMYXIN B [Concomitant]
     Indication: KLEBSIELLA INFECTION
     Dosage: 500000 IU, 2X/DAY
     Route: 042
     Dates: start: 20130218, end: 20130324
  14. POLYMYXIN B [Concomitant]
     Indication: HERPES SIMPLEX
  15. TRANEXAMIC ACID [Concomitant]
     Dosage: 1500 MG, 3X/DAY (EVERY 8 HOURS)
     Route: 048
     Dates: start: 20130225, end: 20130311
  16. FUROSEMIDE [Concomitant]
     Dosage: 20 MG ^ACM^
     Route: 042
     Dates: start: 20130218, end: 20130316
  17. CAPTOPRIL [Concomitant]
     Dosage: 25 MG, 2X/DAY (EVERY 12 HOURS)
     Route: 048
     Dates: start: 20130228, end: 20130327
  18. LEVOFLOXACIN [Concomitant]
     Indication: KLEBSIELLA INFECTION
     Dosage: 500 MG/DAY
     Route: 042
     Dates: start: 20130301, end: 20130312
  19. LEVOFLOXACIN [Concomitant]
     Indication: HERPES SIMPLEX
  20. SPIRONOLACTONE [Concomitant]
     Dosage: 50 MG/DAY
     Route: 048
     Dates: start: 20130303, end: 20130327
  21. PETHIDINE [Concomitant]
     Dosage: 2 ML, ACM (UNSPECIFIED FREQUENCY)
     Route: 042
     Dates: start: 20130217, end: 20130223
  22. ONDASETRON [Concomitant]
     Dosage: 4 MG, 4X/DAY
     Route: 042
     Dates: start: 20130206, end: 20130220
  23. AMPHOTERICIN B LIPID COMPLEX [Concomitant]
     Indication: KLEBSIELLA INFECTION
     Dosage: 250 MG, 1X/DAY
     Route: 042
     Dates: start: 20130219, end: 20130302
  24. AMPHOTERICIN B LIPID COMPLEX [Concomitant]
     Indication: HERPES SIMPLEX
  25. PARACETAMOL [Concomitant]
     Dosage: 500 MG, 4X/DAY
     Route: 048
     Dates: start: 20130304, end: 20130304
  26. METRONIDAZOLE [Concomitant]

REACTIONS (1)
  - Enterococcal infection [Unknown]
